FAERS Safety Report 7972606-4 (Version None)
Quarter: 2011Q4

REPORT INFORMATION
  Report Type: 
  Country: None (occurrence: None)
  Receive Date: 20111213
  Receipt Date: 20111208
  Transmission Date: 20120403
  Serious: Yes (Other)
  Sender: FDA-Public Use
  Company Number: TR-BAYER-2011-073486

PATIENT
  Age: 39 Year
  Sex: Female
  Weight: 69 kg

DRUGS (3)
  1. BETASERON [Suspect]
     Dosage: UNK
     Route: 058
     Dates: start: 20110101
  2. BETASERON [Suspect]
     Indication: MULTIPLE SCLEROSIS
     Dosage: 0.75 ML, UNK
     Route: 058
     Dates: start: 20110617, end: 20110801
  3. FLURBIPROFEN [Concomitant]

REACTIONS (5)
  - UNEVALUABLE EVENT [None]
  - SYNCOPE [None]
  - RASH [None]
  - HYPERSENSITIVITY [None]
  - OEDEMA [None]
